FAERS Safety Report 9454160 (Version 3)
Quarter: 2013Q4

REPORT INFORMATION
  Report Type: Spontaneous
  Country: US (occurrence: None)
  Receive Date: 20130807
  Receipt Date: 20131227
  Transmission Date: 20140711
  Serious: Yes (Hospitalization, Congenital Anomaly)
  Sender: FDA-Public Use
  Company Number: SYM-2013-07656

PATIENT
  Age: 0 Day
  Sex: Male

DRUGS (1)
  1. WELLBUTRIN SR [Suspect]
     Indication: PRODUCT USED FOR UNKNOWN INDICATION
     Route: 064
     Dates: start: 20010214

REACTIONS (11)
  - Maternal drugs affecting foetus [None]
  - Pulmonary artery stenosis congenital [None]
  - Coarctation of the aorta [None]
  - Hypoplastic left heart syndrome [None]
  - Haemoglobin increased [None]
  - Hypotension [None]
  - Acidosis [None]
  - Pleural effusion [None]
  - Exercise tolerance decreased [None]
  - Cyanosis [None]
  - Clubbing [None]
